FAERS Safety Report 6780373-5 (Version None)
Quarter: 2010Q2

REPORT INFORMATION
  Report Type: 
  Country: None (occurrence: None)
  Receive Date: 20100618
  Receipt Date: 20100608
  Transmission Date: 20101027
  Serious: Yes (Other)
  Sender: FDA-Public Use
  Company Number: US-WYE-H15587010

PATIENT
  Sex: Male
  Weight: 95.34 kg

DRUGS (5)
  1. EFFEXOR XR [Suspect]
     Indication: DEPRESSION
     Dosage: 100 MG DAILY FROM UNKNOWN DATE TO 2006, THEN WAS INCREASED TO 150 MG DAILY IN 2006
  2. METHADONE [Suspect]
     Dosage: ^HIGH DOSE^
     Dates: start: 20060101
  3. MORPHINE [Suspect]
     Indication: PAIN
     Dosage: ^HIGH DOSE^, DISCONTINUED ON AN UNKNOWN DATE AND RESUMED ON AND UNKNOWN DATE
  4. WELLBUTRIN [Concomitant]
  5. OXYCONTIN [Concomitant]
     Dosage: UNKNOWN

REACTIONS (8)
  - ASPERMIA [None]
  - CONFUSIONAL STATE [None]
  - DRUG INEFFECTIVE [None]
  - EJACULATION DISORDER [None]
  - FEELING ABNORMAL [None]
  - GENITAL HYPOAESTHESIA [None]
  - HAEMORRHAGE [None]
  - UNEVALUABLE EVENT [None]
